FAERS Safety Report 7940473-0 (Version None)
Quarter: 2011Q4

REPORT INFORMATION
  Report Type: 
  Country: None (occurrence: None)
  Receive Date: 20111128
  Receipt Date: 20111122
  Transmission Date: 20120403
  Serious: No
  Sender: FDA-Public Use
  Company Number: US-PFIZER INC-2011286747

PATIENT
  Sex: Female

DRUGS (2)
  1. IBUPROFEN (ADVIL) [Suspect]
     Dosage: 2 LIQUI-GELS
     Route: 048
     Dates: start: 20111120
  2. IBUPROFEN (ADVIL) [Suspect]
     Dosage: 4 LIQUI-GELS
     Route: 048
     Dates: start: 20111119

REACTIONS (2)
  - HYPERSENSITIVITY [None]
  - OEDEMA PERIPHERAL [None]
